FAERS Safety Report 6240510-8 (Version None)
Quarter: 2009Q2

REPORT INFORMATION
  Report Type: 
  Country: None (occurrence: None)
  Receive Date: 20090623
  Receipt Date: 20090408
  Transmission Date: 20091009
  Serious: No
  Sender: FDA-Public Use
  Company Number: US-ASTRAZENECA-2009UW08798

PATIENT
  Age: 29651 Day
  Sex: Female
  Weight: 57.6 kg

DRUGS (11)
  1. PULMICORT RESPULES [Suspect]
     Indication: CHRONIC OBSTRUCTIVE PULMONARY DISEASE
     Route: 055
     Dates: start: 20090407
  2. PULMICORT RESPULES [Suspect]
     Indication: EMPHYSEMA
     Route: 055
     Dates: start: 20090407
  3. ALBUTEROL [Concomitant]
  4. SPIRIVA [Concomitant]
  5. SSKI [Concomitant]
  6. LEVOTHYROXINE SODIUM [Concomitant]
  7. ESTROGEN [Concomitant]
  8. ZITHROMAX [Concomitant]
  9. PREDNISONE TAB [Concomitant]
  10. OMEPRAZOLE [Concomitant]
  11. PULMICORT FLEXHALER [Concomitant]
     Dosage: 1 PUFF
     Route: 055

REACTIONS (2)
  - DYSGEUSIA [None]
  - ORAL PAIN [None]
